FAERS Safety Report 10429249 (Version 1)
Quarter: 2014Q3

REPORT INFORMATION
  Report Type: Spontaneous
  Country: US (occurrence: None)
  Receive Date: 20140902
  Receipt Date: 20140902
  Transmission Date: 20150326
  Serious: No
  Sender: FDA-Public Use
  Company Number: None

PATIENT
  Age: 23 Year
  Sex: Female

DRUGS (15)
  1. FERROUS SULFATE [Concomitant]
     Active Substance: FERROUS SULFATE\FERROUS SULFATE, DRIED
  2. HEPARIN [Concomitant]
     Active Substance: HEPARIN SODIUM
  3. SERTRALINE [Concomitant]
     Active Substance: SERTRALINE HYDROCHLORIDE
  4. SOTALOL. [Concomitant]
     Active Substance: SOTALOL
  5. ACETAMINOPHEN. [Concomitant]
     Active Substance: ACETAMINOPHEN
  6. LISINOPRIL. [Concomitant]
     Active Substance: LISINOPRIL
  7. WARFARIN [Suspect]
     Active Substance: WARFARIN
     Indication: DEEP VEIN THROMBOSIS
     Route: 048
     Dates: end: 20140703
  8. ALBUTEROL. [Concomitant]
     Active Substance: ALBUTEROL
  9. SPIRONOLACTONE. [Concomitant]
     Active Substance: SPIRONOLACTONE
  10. INSULIN ASPART [Concomitant]
     Active Substance: INSULIN ASPART
  11. ONDANSETRON [Concomitant]
     Active Substance: ONDANSETRON
  12. IBUPROFEN. [Concomitant]
     Active Substance: IBUPROFEN
  13. MORPHINE [Concomitant]
     Active Substance: MORPHINE
  14. OXYCODONE [Concomitant]
     Active Substance: OXYCODONE
  15. IPRATROPIUM [Concomitant]
     Active Substance: IPRATROPIUM

REACTIONS (2)
  - International normalised ratio increased [None]
  - Dyspnoea [None]

NARRATIVE: CASE EVENT DATE: 20140705
